FAERS Safety Report 25385890 (Version 1)
Quarter: 2025Q2

REPORT INFORMATION
  Report Type: Spontaneous
  Country: US (occurrence: None)
  Receive Date: 20250531
  Receipt Date: 20250531
  Transmission Date: 20250716
  Serious: Yes (Other)
  Sender: FDA-CTU
  Company Number: None

PATIENT
  Age: 57 Year
  Sex: Female

DRUGS (1)
  1. FLUOROURACIL [Suspect]
     Active Substance: FLUOROURACIL
     Indication: Actinic keratosis
     Dosage: FREQUENCY : TWICE A DAY;?
     Route: 061
     Dates: start: 20250527, end: 20250531

REACTIONS (2)
  - Stomatitis [None]
  - Nausea [None]

NARRATIVE: CASE EVENT DATE: 20250528
